FAERS Safety Report 16918237 (Version 1)
Quarter: 2019Q4

REPORT INFORMATION
  Report Type: Spontaneous
  Country: US (occurrence: US)
  Receive Date: 20191015
  Receipt Date: 20191015
  Transmission Date: 20200122
  Serious: No
  Sender: FDA-Public Use
  Company Number: US-MYLANLABS-2019M1091337

PATIENT
  Sex: Female

DRUGS (1)
  1. ESTRADIOL TRANSDERMAL SYSTEM [Suspect]
     Active Substance: ESTRADIOL
     Indication: PRODUCT USED FOR UNKNOWN INDICATION
     Dosage: 0.025 MILLIGRAM, QD
     Route: 062

REACTIONS (9)
  - Weight increased [Unknown]
  - Swelling [Unknown]
  - Breast engorgement [Unknown]
  - Abdominal distension [Unknown]
  - Breast pain [Unknown]
  - Mood altered [Unknown]
  - Breast enlargement [Unknown]
  - Feeling abnormal [Unknown]
  - Breast discomfort [Unknown]
